FAERS Safety Report 8465195-1 (Version None)
Quarter: 2012Q2

REPORT INFORMATION
  Report Type: 
  Country: None (occurrence: None)
  Receive Date: 20120626
  Receipt Date: 20120619
  Transmission Date: 20120825
  Serious: No
  Sender: FDA-Public Use
  Company Number: PHEH2012US012421

PATIENT
  Sex: Male
  Weight: 121.9 kg

DRUGS (8)
  1. GLYBURIDE [Concomitant]
  2. SIMVASTATIN [Concomitant]
     Dosage: 80 MG, UNK
  3. METFORMIN HCL [Concomitant]
  4. LEVOTHYROXINE [Concomitant]
  5. FISH OIL [Concomitant]
  6. TASIGNA [Suspect]
     Dosage: 300 MG, BID
     Route: 048
  7. LISINOPRIL [Concomitant]
  8. ASPIRIN [Concomitant]

REACTIONS (3)
  - MUSCLE SPASMS [None]
  - RENAL FUNCTION TEST ABNORMAL [None]
  - LIVER FUNCTION TEST ABNORMAL [None]
